FAERS Safety Report 15463505 (Version 2)
Quarter: 2019Q1

REPORT INFORMATION
  Report Type: Spontaneous
  Country: DE (occurrence: DE)
  Receive Date: 20181004
  Receipt Date: 20190108
  Transmission Date: 20190417
  Serious: Yes (Other)
  Sender: FDA-Public Use
  Company Number: PHHY2018DE109478

PATIENT
  Age: 15 Year
  Sex: Male

DRUGS (9)
  1. VINCRISTINE SULFATE. [Suspect]
     Active Substance: VINCRISTINE SULFATE
     Indication: PRODUCT USED FOR UNKNOWN INDICATION
     Dosage: UNK
     Route: 065
  2. VORINOSTAT [Suspect]
     Active Substance: VORINOSTAT
     Indication: EWING^S SARCOMA
     Dosage: 400 MG, UNK (SECOND THERAPY REGIME: VERINOSTAT 400 MG P.O. STANDARD DOSAGE)
     Route: 048
  3. TOCOPHEROL [Suspect]
     Active Substance: TOCOPHEROL
     Indication: EWING^S SARCOMA
     Dosage: 400 IU, UNK (THIRD THERAPY REGIME: VITAMIN E 400 IE P.O. STANDARD DOSAGE)
     Route: 048
  4. CRIZOTINIB [Suspect]
     Active Substance: CRIZOTINIB
     Indication: PRODUCT USED FOR UNKNOWN INDICATION
     Dosage: 500 MG, UNK (FOURTH THERAPY REGIME: CRIZOTINIB 500 MG, STANDARD DOSAGE)
     Route: 048
  5. PACLITAXEL. [Suspect]
     Active Substance: PACLITAXEL
     Indication: PRODUCT USED FOR UNKNOWN INDICATION
     Dosage: UNK
     Route: 065
  6. TRIAMTERENE. [Suspect]
     Active Substance: TRIAMTERENE
     Indication: EWING^S SARCOMA
     Dosage: 25 MG, UNK (SECOND THERAPY REGIME: TRIAMTERENE  25 MG P.O. REDUCED DOSAGE)
     Route: 048
  7. ARSENIC TRIOXIDE. [Suspect]
     Active Substance: ARSENIC TRIOXIDE
     Indication: EWING^S SARCOMA
     Dosage: 0.1 MG/KG, UNK (THIRD THERAPY REGIME: ARSENIC TRIOXIDE 0.1 MG/KG P.O. REDUCED DOSAGE)
     Route: 048
  8. SORAFENIB [Suspect]
     Active Substance: SORAFENIB
     Indication: EWING^S SARCOMA
     Dosage: 400 MG (REDUCED DOSAGE)
     Route: 048
  9. TRETINOIN. [Suspect]
     Active Substance: TRETINOIN
     Indication: PRODUCT USED FOR UNKNOWN INDICATION
     Dosage: 25 MG/M2, UNK (SECOND THERAPY REGIME: TRETINOIN 25 MG/M2, REDUCED DOSAGE)
     Route: 048

REACTIONS (9)
  - Bone pain [Unknown]
  - Product administered to patient of inappropriate age [Unknown]
  - Thrombocytopenia [Unknown]
  - Activated partial thromboplastin time prolonged [Unknown]
  - Pneumonia [Unknown]
  - Anaemia [Unknown]
  - Dyspnoea [Unknown]
  - Lymphopenia [Unknown]
  - Product use in unapproved indication [Unknown]
